FAERS Safety Report 4488128-1 (Version None)
Quarter: 2004Q4

REPORT INFORMATION
  Report Type: 
  Country: None (occurrence: None)
  Receive Date: 20041028
  Receipt Date: 20041018
  Transmission Date: 20050328
  Serious: Yes (Other)
  Sender: FDA-Public Use
  Company Number: GB-BRISTOL-MYERS SQUIBB COMPANY-12734489

PATIENT
  Age: 65 Year
  Sex: Female
  Weight: 120 kg

DRUGS (2)
  1. CISPLATIN [Suspect]
     Indication: BLADDER CANCER
     Dosage: 1ST DOSE: 04JUN04
     Dates: start: 20040928, end: 20040928
  2. GEMCITABINE [Suspect]
     Indication: BLADDER CANCER
     Dosage: 1ST DOSE: 03JUN04
     Dates: start: 20040928, end: 20040928

REACTIONS (1)
  - EMBOLISM [None]
